FAERS Safety Report 17977229 (Version 2)
Quarter: 2020Q3

REPORT INFORMATION
  Report Type: Report from Study
  Country: None (occurrence: US)
  Receive Date: 20200702
  Receipt Date: 20200731
  Transmission Date: 20201103
  Serious: Yes (Hospitalization, Other)
  Sender: FDA-Public Use
  Company Number: US-ABBVIE-20K-163-3456219-00

PATIENT
  Sex: Male

DRUGS (4)
  1. VENCLEXTA [Suspect]
     Active Substance: VENETOCLAX
     Indication: HYPOOSMOLAR STATE
     Dosage: TAKE 2 TABLET(S) BY MOUTH DAILY FOR 7 DAYS
     Route: 048
  2. VENCLEXTA [Suspect]
     Active Substance: VENETOCLAX
     Indication: HYPONATRAEMIA
     Dosage: TAKE 4 TABLET(S) BY MOUTH DAILY FOR 7 DAYS
     Route: 048
  3. VENCLEXTA [Suspect]
     Active Substance: VENETOCLAX
     Indication: WALDENSTROM^S MACROGLOBULINAEMIA
     Dosage: TAKE 1 TABLET BY MOUTH DAILY FOR 7 DAYS
     Route: 048
  4. VENCLEXTA [Suspect]
     Active Substance: VENETOCLAX
     Dosage: INCREASED TO 800MG EVERY DAY
     Route: 048
     Dates: start: 20200722

REACTIONS (4)
  - Hospitalisation [Unknown]
  - Off label use [Unknown]
  - Intentional product use issue [Unknown]
  - Blood immunoglobulin M increased [Unknown]
